FAERS Safety Report 4838371-4 (Version None)
Quarter: 2005Q4

REPORT INFORMATION
  Report Type: 
  Country: None (occurrence: None)
  Receive Date: 20051128
  Receipt Date: 20051005
  Transmission Date: 20060501
  Serious: Yes (Other)
  Sender: FDA-Public Use
  Company Number: PHBS2005JP14655

PATIENT
  Age: 82 Year
  Sex: Male

DRUGS (6)
  1. STARSIS [Suspect]
     Dosage: 60 MG, QD
     Route: 048
     Dates: start: 20040617, end: 20050611
  2. STARSIS [Suspect]
     Dosage: 60 MG, QD
     Route: 048
     Dates: start: 20050627, end: 20050821
  3. NORVASC [Concomitant]
     Dosage: 0.5 MG, UNK
  4. MEVALOTIN [Concomitant]
     Dosage: 10 MG, UNK
  5. CLEANAL [Concomitant]
     Dosage: 1.2 G, UNK
  6. DIGOSIN [Concomitant]
     Dosage: 0.25 MG, UNK

REACTIONS (3)
  - ALANINE AMINOTRANSFERASE INCREASED [None]
  - ASPARTATE AMINOTRANSFERASE INCREASED [None]
  - CHOLELITHIASIS [None]
